FAERS Safety Report 9308961 (Version 3)
Quarter: 2014Q1

REPORT INFORMATION
  Report Type: Report from Study
  Country: GB (occurrence: GB)
  Receive Date: 20130524
  Receipt Date: 20140328
  Transmission Date: 20141002
  Serious: Yes (Other)
  Sender: FDA-Public Use
  Company Number: GB-009507513-1305GBR012382

PATIENT
  Age: 67 Year
  Sex: Male
  Weight: 90.2 kg

DRUGS (26)
  1. POSACONAZOLE [Suspect]
     Indication: ANTIFUNGAL PROPHYLAXIS
     Dosage: 400 MG, BID
     Route: 048
     Dates: start: 20130429, end: 20130529
  2. PREDNISOLONE [Concomitant]
     Indication: LIVER TRANSPLANT
     Dosage: 10 MG, QD
     Route: 048
     Dates: start: 2004
  3. TACROLIMUS [Concomitant]
     Indication: LIVER TRANSPLANT
     Dosage: 0.5 MG, BID
     Route: 048
     Dates: start: 2004
  4. ACETYLCYSTEINE [Concomitant]
     Indication: LIVER TRANSPLANT
     Dosage: 600 MG, BID
     Route: 048
  5. SULFAMETHOXAZOLE (+) TRIMETHOPRIM [Concomitant]
     Indication: PROPHYLAXIS
     Dosage: 480 MG, QD
     Route: 048
     Dates: start: 20130513
  6. DOCUSATE SODIUM [Concomitant]
     Indication: CONSTIPATION
     Dosage: 200 MG, BID
     Route: 048
     Dates: start: 20130513
  7. ENOXAPARIN SODIUM [Concomitant]
     Indication: THROMBOSIS PROPHYLAXIS
     Dosage: 40 MG, QD
     Route: 058
     Dates: start: 20130513
  8. FERROUS FUMARATE [Concomitant]
     Indication: ANAEMIA PROPHYLAXIS
     Dosage: 10 ML, BID
     Route: 048
     Dates: start: 20130513
  9. AMPHOTERICIN B [Concomitant]
     Indication: PROPHYLAXIS
     Dosage: 25 MG, BID, ROUTE: NEBULIZER
     Dates: start: 20130513
  10. NYSTATIN [Concomitant]
     Indication: PROPHYLAXIS
     Dosage: 1 ML, QID
     Route: 048
     Dates: start: 20130513
  11. ACETAMINOPHEN [Concomitant]
     Indication: ANALGESIC THERAPY
     Dosage: 1000 MG, QID
     Route: 042
     Dates: start: 20130512
  12. PIPERACILLIN SODIUM (+) TAZOBACTAM SODIUM [Concomitant]
     Indication: PROPHYLAXIS
     Dosage: 4.5 G, TID
     Route: 042
     Dates: start: 20130512
  13. RANITIDINE [Concomitant]
     Indication: PROPHYLAXIS
     Dosage: 50 MG, TID
     Route: 042
     Dates: start: 20130512
  14. ALBUTEROL [Concomitant]
     Indication: PROPHYLAXIS
     Dosage: 25 MG, BID
     Route: 055
     Dates: start: 20130513
  15. TEICOPLANIN [Concomitant]
     Indication: PROPHYLAXIS
     Dosage: 400 MG, QD
     Route: 042
     Dates: start: 20130512
  16. PABRINEX [Concomitant]
     Indication: PROPHYLAXIS
     Dosage: 2 PAIRS, BID
     Route: 042
     Dates: start: 20130513, end: 20130515
  17. VALGANCICLOVIR HYDROCHLORIDE [Concomitant]
     Indication: PROPHYLAXIS
     Dosage: 450 MG, QD
     Route: 048
     Dates: start: 20130513, end: 20130514
  18. METHYLPREDNISOLONE [Concomitant]
     Indication: PROPHYLAXIS
     Dosage: 500 MG, 5 TIMES PER DAY
     Route: 042
     Dates: start: 20130512, end: 20130513
  19. LEVOBUPIVACAINE [Concomitant]
     Indication: ANALGESIC THERAPY
     Dosage: 0.125 %, FREQUENCY: INFUSION
     Route: 008
     Dates: start: 20130513
  20. FUROSEMIDE [Concomitant]
     Indication: DIURETIC THERAPY
     Dosage: DOSE: 10-20 MG, PRN
     Route: 042
     Dates: start: 20130513
  21. MAGNESIUM SULFATE [Concomitant]
     Indication: ROUTINE HEALTH MAINTENANCE
     Dosage: 10-20 MMOL, FREQUENCY: OTHER
     Route: 042
     Dates: start: 20130513
  22. POTASSIUM CHLORIDE [Concomitant]
     Indication: ROUTINE HEALTH MAINTENANCE
     Dosage: 10-20 MMOL, PRN
     Route: 042
     Dates: start: 20130512
  23. FENTANYL [Concomitant]
     Indication: ANALGESIC THERAPY
     Dosage: 250 MICROGRAM, PRN
     Route: 042
     Dates: start: 20130512, end: 20130512
  24. MORPHINE SULFATE [Concomitant]
     Indication: ANALGESIC THERAPY
     Dosage: 60 MG, FREQUENCY: INFUSION
     Route: 042
     Dates: start: 20130512, end: 20130515
  25. REMIFENTANIL HYDROCHLORIDE [Concomitant]
     Indication: ANALGESIC THERAPY
     Dosage: 2 MG, FREQUENCY: INFUSION
     Route: 042
     Dates: start: 20130512, end: 20130515
  26. REMIFENTANIL HYDROCHLORIDE [Concomitant]
     Indication: SEDATION

REACTIONS (1)
  - Liver disorder [Recovered/Resolved]
